FAERS Safety Report 14187167 (Version 6)
Quarter: 2018Q2

REPORT INFORMATION
  Report Type: Report from Study
  Country: None (occurrence: US)
  Receive Date: 20171114
  Receipt Date: 20180612
  Transmission Date: 20180711
  Serious: Yes (Other)
  Sender: FDA-Public Use
  Company Number: US-ABBVIE-16K-163-1784739-00

PATIENT
  Age: 69 Year
  Sex: Female
  Weight: 138.47 kg

DRUGS (38)
  1. DUREZOL [Concomitant]
     Active Substance: DIFLUPREDNATE
     Indication: UVEITIS
  2. CITRACAL [Concomitant]
     Active Substance: CALCIUM CITRATE
     Indication: PRODUCT USED FOR UNKNOWN INDICATION
  3. HUMIRA [Suspect]
     Active Substance: ADALIMUMAB
     Indication: PSORIASIS
     Route: 058
     Dates: start: 2015
  4. SYNTHROID [Concomitant]
     Active Substance: LEVOTHYROXINE SODIUM
     Indication: HYPOTHYROIDISM
  5. FISH OIL [Concomitant]
     Active Substance: FISH OIL
     Indication: PRODUCT USED FOR UNKNOWN INDICATION
  6. HUMIRA [Suspect]
     Active Substance: ADALIMUMAB
     Route: 058
     Dates: start: 201601
  7. FOLIC ACID. [Concomitant]
     Active Substance: FOLIC ACID
     Indication: VITAMIN SUPPLEMENTATION
  8. LISINOPRIL. [Concomitant]
     Active Substance: LISINOPRIL
     Indication: HYPERTENSION
  9. PRAVASTATIN. [Concomitant]
     Active Substance: PRAVASTATIN
     Indication: BLOOD CHOLESTEROL INCREASED
  10. PREDNISONE. [Concomitant]
     Active Substance: PREDNISONE
     Dosage: ONE WEEK
  11. HYDROCHLOROTHIAZIDE. [Concomitant]
     Active Substance: HYDROCHLOROTHIAZIDE
     Indication: PRODUCT USED FOR UNKNOWN INDICATION
  12. HUMIRA [Suspect]
     Active Substance: ADALIMUMAB
     Indication: RHEUMATOID ARTHRITIS
     Route: 058
     Dates: start: 2003, end: 2012
  13. DILTIAZEM. [Concomitant]
     Active Substance: DILTIAZEM
     Indication: HYPERTENSION
  14. DULOXETINE. [Concomitant]
     Active Substance: DULOXETINE
     Indication: RHEUMATOID ARTHRITIS
  15. NEURONTIN [Concomitant]
     Active Substance: GABAPENTIN
     Indication: RHEUMATOID ARTHRITIS
  16. PROMETRIUM [Concomitant]
     Active Substance: PROGESTERONE
     Indication: PRODUCT USED FOR UNKNOWN INDICATION
  17. METHOTREXATE. [Suspect]
     Active Substance: METHOTREXATE
     Indication: PRODUCT USED FOR UNKNOWN INDICATION
     Route: 065
  18. COLESTIPOL [Concomitant]
     Active Substance: COLESTIPOL
     Indication: PROPHYLAXIS
  19. ALBUTEROL SULFATE. [Concomitant]
     Active Substance: ALBUTEROL SULFATE
     Indication: PRODUCT USED FOR UNKNOWN INDICATION
  20. OXYGEN. [Concomitant]
     Active Substance: OXYGEN
     Indication: PRODUCT USED FOR UNKNOWN INDICATION
  21. PREDNISONE. [Concomitant]
     Active Substance: PREDNISONE
     Indication: PRODUCT USED FOR UNKNOWN INDICATION
     Dosage: ONE WEEK
  22. SILVER SULFADIAZINE. [Concomitant]
     Active Substance: SILVER SULFADIAZINE
     Indication: PRODUCT USED FOR UNKNOWN INDICATION
  23. TRAMADOL. [Concomitant]
     Active Substance: TRAMADOL
     Indication: PRODUCT USED FOR UNKNOWN INDICATION
  24. DULCOLAX NOS [Concomitant]
     Active Substance: BISACODYL OR DOCUSATE SODIUM
     Indication: PRODUCT USED FOR UNKNOWN INDICATION
  25. VITAMIN D3 [Concomitant]
     Active Substance: CHOLECALCIFEROL
     Indication: PRODUCT USED FOR UNKNOWN INDICATION
  26. TOPIRAMATE. [Concomitant]
     Active Substance: TOPIRAMATE
     Indication: PRODUCT USED FOR UNKNOWN INDICATION
  27. REFRESH [Concomitant]
     Active Substance: UNSPECIFIED INGREDIENT
     Indication: PRODUCT USED FOR UNKNOWN INDICATION
  28. ALBUTEROL. [Concomitant]
     Active Substance: ALBUTEROL
     Indication: PRODUCT USED FOR UNKNOWN INDICATION
  29. KONDREMUL [Concomitant]
     Active Substance: MINERAL OIL
     Indication: PRODUCT USED FOR UNKNOWN INDICATION
  30. CARAFATE [Concomitant]
     Active Substance: SUCRALFATE
     Indication: GASTRIC ULCER
  31. LIDODERM [Concomitant]
     Active Substance: LIDOCAINE
     Indication: PRODUCT USED FOR UNKNOWN INDICATION
  32. PREDNISONE. [Concomitant]
     Active Substance: PREDNISONE
     Dosage: ONE WEEK
  33. METHOTREXATE. [Concomitant]
     Active Substance: METHOTREXATE
     Indication: PRODUCT USED FOR UNKNOWN INDICATION
  34. BIOTENE NOS [Concomitant]
     Active Substance: CETYLPYRIDINIUM CHLORIDE OR SODIUM FLUORIDE OR SODIUM MONOFLUOROPHOSPHATE OR GLUCOSE OXIDASE\LACTOFERRIN\LACTOPEROXIDASE BOVINE\LYSOZYME
     Indication: PRODUCT USED FOR UNKNOWN INDICATION
  35. CARAFATE [Concomitant]
     Active Substance: SUCRALFATE
     Indication: GASTROOESOPHAGEAL REFLUX DISEASE
  36. NEURONTIN [Concomitant]
     Active Substance: GABAPENTIN
     Indication: FIBROMYALGIA
  37. PROAIR HFA [Concomitant]
     Active Substance: ALBUTEROL SULFATE
     Indication: PRODUCT USED FOR UNKNOWN INDICATION
  38. DEXILANT [Concomitant]
     Active Substance: DEXLANSOPRAZOLE
     Indication: PRODUCT USED FOR UNKNOWN INDICATION

REACTIONS (60)
  - Corneal disorder [Unknown]
  - Nasopharyngitis [Not Recovered/Not Resolved]
  - Headache [Unknown]
  - Pain [Unknown]
  - Abdominal pain upper [Unknown]
  - Uveitis [Unknown]
  - Supraventricular tachycardia [Unknown]
  - Pain [Unknown]
  - Device difficult to use [Unknown]
  - Gastritis [Unknown]
  - Therapeutic response shortened [Unknown]
  - Thyroidectomy [Unknown]
  - Loss of personal independence in daily activities [Unknown]
  - Lethargy [Unknown]
  - Eye pruritus [Unknown]
  - Insomnia [Unknown]
  - Nodule [Unknown]
  - Rheumatoid arthritis [Unknown]
  - Arthralgia [Not Recovered/Not Resolved]
  - Herpes ophthalmic [Unknown]
  - Muscular weakness [Unknown]
  - Sensitivity to weather change [Unknown]
  - Limb injury [Unknown]
  - Back injury [Unknown]
  - Blindness [Not Recovered/Not Resolved]
  - Fatigue [Recovered/Resolved]
  - Fear of crowded places [Unknown]
  - Back pain [Unknown]
  - Corneal opacity [Unknown]
  - Eye inflammation [Unknown]
  - Fibromyalgia [Unknown]
  - Pruritus allergic [Unknown]
  - Drug hypersensitivity [Unknown]
  - Arthralgia [Unknown]
  - Alopecia [Unknown]
  - Pain in extremity [Recovering/Resolving]
  - Disease susceptibility [Unknown]
  - Keratitis [Unknown]
  - Gait disturbance [Unknown]
  - Musculoskeletal discomfort [Unknown]
  - Ocular discomfort [Unknown]
  - Musculoskeletal pain [Recovering/Resolving]
  - Fall [Unknown]
  - Eye discharge [Unknown]
  - Head injury [Unknown]
  - Corneal oedema [Unknown]
  - Rheumatoid lung [Not Recovered/Not Resolved]
  - Osteoarthritis [Unknown]
  - Intervertebral disc disorder [Unknown]
  - Heart valve incompetence [Unknown]
  - Spondylitis [Unknown]
  - Nasopharyngitis [Recovered/Resolved]
  - Oesophagitis [Unknown]
  - Rhinorrhoea [Unknown]
  - Cataract [Unknown]
  - Lacrimation increased [Unknown]
  - Fatigue [Not Recovered/Not Resolved]
  - Eye oedema [Unknown]
  - Eye swelling [Unknown]
  - Haematochezia [Unknown]

NARRATIVE: CASE EVENT DATE: 2016
